FAERS Safety Report 23345942 (Version 1)
Quarter: 2023Q4

REPORT INFORMATION
  Report Type: Spontaneous
  Country: US (occurrence: US)
  Receive Date: 20231228
  Receipt Date: 20231228
  Transmission Date: 20240110
  Serious: No
  Sender: FDA-Public Use
  Company Number: US-THERATECHNOLOGIES INC.-2023-THE-TES-000527

PATIENT

DRUGS (3)
  1. EGRIFTA SV [Suspect]
     Active Substance: TESAMORELIN ACETATE
     Indication: Lipodystrophy acquired
     Dosage: 1.4 MG, QD
     Route: 058
     Dates: start: 202308
  2. NPH INSULIN [Suspect]
     Active Substance: INSULIN BEEF
     Indication: Product used for unknown indication
     Dosage: 30 IU INTERNATIONAL UNIT(S)
     Route: 065
  3. NPH INSULIN [Suspect]
     Active Substance: INSULIN BEEF
     Dosage: 60 IU INTERNATIONAL UNIT(S), BID
     Route: 065

REACTIONS (1)
  - Weight increased [Unknown]
